FAERS Safety Report 8826485 (Version 1)
Quarter: 2012Q4

REPORT INFORMATION
  Report Type: 
  Country: DE (occurrence: DE)
  Receive Date: 20121005
  Receipt Date: 20121005
  Transmission Date: 20130627
  Serious: Yes (Hospitalization)
  Sender: FDA-Public Use
  Company Number: DE-GILEAD-2012-0062353

PATIENT
  Age: 81 Year
  Sex: Male

DRUGS (4)
  1. RANOLAZINE [Suspect]
     Indication: CORONARY ARTERY DISEASE
     Dosage: 375 mg, BID
     Route: 048
     Dates: start: 201107, end: 201107
  2. ATACAND [Concomitant]
     Indication: PRODUCT USED FOR UNKNOWN INDICATION
     Dosage: 16 mg, QD
     Route: 048
  3. ASS [Concomitant]
     Indication: PRODUCT USED FOR UNKNOWN INDICATION
     Dosage: 100 mg, QD
     Route: 048
  4. TORASEMID [Concomitant]
     Dosage: 10 mg, QD
     Route: 048

REACTIONS (1)
  - Rhabdomyolysis [Recovering/Resolving]
